FAERS Safety Report 7991249-X (Version None)
Quarter: 2011Q4

REPORT INFORMATION
  Report Type: 
  Country: None (occurrence: None)
  Receive Date: 20111219
  Receipt Date: 20111212
  Transmission Date: 20120403
  Serious: Yes (Death)
  Sender: FDA-Public Use
  Company Number: JP-GLAXOSMITHKLINE-B0768556A

PATIENT
  Age: 57 Year
  Sex: Female

DRUGS (6)
  1. ESTRADIOL [Concomitant]
     Route: 065
  2. GEMCITABINE [Concomitant]
     Route: 065
  3. HYCAMTIN [Suspect]
     Indication: OVARIAN CANCER
     Dosage: .8MGM2 PER DAY
     Route: 042
     Dates: start: 20111128, end: 20111202
  4. PACLITAXEL [Concomitant]
     Route: 065
  5. PICIBANIL [Concomitant]
     Route: 065
  6. CARBOPLATIN [Concomitant]
     Route: 065

REACTIONS (1)
  - FEBRILE NEUTROPENIA [None]
